FAERS Safety Report 11876348 (Version 1)
Quarter: 2015Q4

REPORT INFORMATION
  Report Type: Report from Study
  Country: CA (occurrence: CA)
  Receive Date: 20151229
  Receipt Date: 20151229
  Transmission Date: 20160305
  Serious: Yes (Other)
  Sender: FDA-Public Use
  Company Number: CA-JNJFOC-20151118344

PATIENT
  Sex: Male
  Weight: 101.5 kg

DRUGS (2)
  1. REMICADE [Suspect]
     Active Substance: INFLIXIMAB
     Indication: RHEUMATOID ARTHRITIS
     Dosage: Q 6/52 WEEKS
     Route: 042
     Dates: start: 20120628
  2. REMICADE [Suspect]
     Active Substance: INFLIXIMAB
     Indication: COLITIS ULCERATIVE
     Dosage: Q 6/52 WEEKS
     Route: 042
     Dates: start: 20120628

REACTIONS (6)
  - Rheumatoid arthritis [Recovering/Resolving]
  - Frequent bowel movements [Unknown]
  - Asthenia [Unknown]
  - Adrenal insufficiency [Recovered/Resolved]
  - Drug effect decreased [Unknown]
  - Pain [Unknown]

NARRATIVE: CASE EVENT DATE: 2015
